FAERS Safety Report 8482836 (Version 8)
Quarter: 2012Q4

REPORT INFORMATION
  Report Type: 
  Country: US (occurrence: US)
  Receive Date: 20120329
  Receipt Date: 20120920
  Transmission Date: 20130627
  Serious: Yes (Hospitalization, Other)
  Sender: FDA-Public Use
  Company Number: US-MERCK-1111USA02488

PATIENT

DRUGS (10)
  1. FOSAMAX [Suspect]
     Indication: OSTEOPOROSIS
     Dosage: 10 mg, UNK
     Route: 048
     Dates: start: 2000, end: 2010
  2. FOSAMAX [Suspect]
     Dosage: 70 mg, QW
     Route: 048
  3. ATACAND [Concomitant]
     Dates: start: 1990, end: 201011
  4. ALENDRONATE SODIUM [Suspect]
     Indication: OSTEOPOROSIS
     Dosage: 70 mg, UNK
     Route: 048
     Dates: start: 2008, end: 2010
  5. BONIVA [Suspect]
     Indication: OSTEOPOROSIS
     Dosage: 150 mg, UNK
     Route: 048
     Dates: start: 2006, end: 2008
  6. SYNTHROID [Concomitant]
     Indication: HYPOTHYROIDISM
     Dates: start: 1995
  7. ASMANEX [Concomitant]
     Indication: ASTHMA
     Dates: start: 1995, end: 201012
  8. PROZAC [Concomitant]
     Indication: DEPRESSION
     Dates: start: 1990
  9. PROAIR (ALBUTEROL SULFATE) [Concomitant]
     Indication: ASTHMA
     Dates: start: 1995
  10. SYMBICORT [Concomitant]
     Indication: ASTHMA
     Dates: start: 201012

REACTIONS (38)
  - Anal fistula [Unknown]
  - Gallbladder disorder [Unknown]
  - Syncope [Recovered/Resolved]
  - Bronchitis [Recovered/Resolved]
  - Arthropathy [Unknown]
  - Osteonecrosis of jaw [Unknown]
  - Oral infection [Unknown]
  - Anxiety [Unknown]
  - Fear [Unknown]
  - Dental caries [Unknown]
  - Periodontal disease [Unknown]
  - Tooth disorder [Unknown]
  - Tendonitis [Unknown]
  - Lung disorder [Unknown]
  - Periodontitis [Unknown]
  - Gingival bleeding [Unknown]
  - Body height decreased [Unknown]
  - Gingival hyperplasia [Unknown]
  - Haemorrhoidal haemorrhage [Unknown]
  - Back disorder [Unknown]
  - General physical health deterioration [Unknown]
  - Osteopenia [Not Recovered/Not Resolved]
  - Bronchitis [Unknown]
  - Rheumatic fever [Unknown]
  - Eye disorder [Unknown]
  - Biliary colic [Unknown]
  - Cholelithiasis [Unknown]
  - Joint injury [Unknown]
  - Joint effusion [Unknown]
  - Osteoarthritis [Unknown]
  - Osteoarthritis [Not Recovered/Not Resolved]
  - Joint effusion [Unknown]
  - Asthenia [Unknown]
  - Osteomyelitis [Unknown]
  - Pruritus [Unknown]
  - Gastrooesophageal reflux disease [Unknown]
  - Alopecia [Recovered/Resolved]
  - Cholecystectomy [None]
